FAERS Safety Report 13319445 (Version 1)
Quarter: 2017Q1

REPORT INFORMATION
  Report Type: Spontaneous
  Country: GB (occurrence: GB)
  Receive Date: 20170309
  Receipt Date: 20170309
  Transmission Date: 20170428
  Serious: Yes (Hospitalization)
  Sender: FDA-Public Use
  Company Number: GB-ENDO PHARMACEUTICALS INC-2017-001143

PATIENT

DRUGS (10)
  1. FENTANYL TRANSDERMAL SYSTEM [Suspect]
     Active Substance: FENTANYL
     Dosage: 100 ?G, DAILY
     Route: 062
     Dates: start: 2014
  2. TRAMADOL. [Suspect]
     Active Substance: TRAMADOL
     Indication: PRODUCT USED FOR UNKNOWN INDICATION
     Dosage: UNK UNK, UNKNOWN
     Route: 065
  3. FENTANYL TRANSDERMAL SYSTEM [Suspect]
     Active Substance: FENTANYL
     Indication: BACK PAIN
     Dosage: 100 ?G, UNKNOWN
     Route: 062
     Dates: start: 2007
  4. FENTANYL TRANSDERMAL SYSTEM [Suspect]
     Active Substance: FENTANYL
     Dosage: 100 MCG+ 50 MCG, UNKNOWN
     Route: 062
     Dates: start: 201012
  5. FENTANYL TRANSDERMAL SYSTEM [Suspect]
     Active Substance: FENTANYL
     Dosage: UNK UNK, UNKNOWN
     Route: 062
     Dates: start: 2014
  6. ORAMORPH [Suspect]
     Active Substance: MORPHINE SULFATE
     Indication: BACK PAIN
     Dosage: 300 ML BOTTLE WAS LASTING ONLY 3 DAYS
     Route: 065
     Dates: start: 2009
  7. ORAMORPH [Suspect]
     Active Substance: MORPHINE SULFATE
     Dosage: 20 ML, DAILY
     Route: 065
     Dates: start: 2014
  8. MIRTAZAPINE. [Suspect]
     Active Substance: MIRTAZAPINE
     Indication: PRODUCT USED FOR UNKNOWN INDICATION
     Dosage: 2 DF, UNK (45 MG TABLETS)
     Route: 065
  9. MIRTAZAPINE. [Suspect]
     Active Substance: MIRTAZAPINE
     Dosage: 15 MG, DAILY
     Route: 065
  10. FENTANYL TRANSDERMAL SYSTEM [Suspect]
     Active Substance: FENTANYL
     Dosage: 14 PATCH, UNK
     Route: 062
     Dates: start: 201407

REACTIONS (4)
  - Toxicity to various agents [Unknown]
  - Intentional overdose [Unknown]
  - Suicide attempt [Recovered/Resolved]
  - Drug ineffective [Unknown]

NARRATIVE: CASE EVENT DATE: 2014
